FAERS Safety Report 7720966-1 (Version None)
Quarter: 2011Q3

REPORT INFORMATION
  Report Type: 
  Country: None (occurrence: None)
  Receive Date: 20110831
  Receipt Date: 20110819
  Transmission Date: 20111222
  Serious: Yes (Hospitalization, Other)
  Sender: FDA-Public Use
  Company Number: US-CELGENEUS-163-21880-11042525

PATIENT
  Sex: Male
  Weight: 112.59 kg

DRUGS (21)
  1. FOLIC ACID [Concomitant]
     Dosage: 1 MILLIGRAM
     Route: 065
  2. WARFARIN SODIUM [Concomitant]
     Dosage: 5MG
     Route: 048
     Dates: end: 20110715
  3. DEXAMETHASONE [Concomitant]
     Dosage: 20 MILLIGRAM
     Dates: start: 20110411
  4. MAGNESIUM OXIDE [Concomitant]
     Dosage: 400 MILLIGRAM
     Route: 048
  5. COUMADIN [Concomitant]
     Route: 065
  6. DEXAMETHASONE [Concomitant]
     Indication: MULTIPLE MYELOMA
     Dosage: 40 MILLIGRAM
     Route: 048
     Dates: start: 20080115
  7. BUMETANIDE [Concomitant]
     Dosage: 30 MILLIGRAM
     Route: 048
  8. DOFAXIDE [Concomitant]
     Dosage: 500 MICROGRAM
     Route: 048
  9. NORCO [Concomitant]
     Indication: PAIN
     Dosage: 10/325
     Route: 065
  10. MULTI-VITAMINS [Concomitant]
     Route: 065
  11. LOVENOX [Concomitant]
     Dosage: 100MG/ML
     Route: 058
  12. SPIRONOLACTONE [Concomitant]
     Dosage: 25 MILLIGRAM
     Route: 048
  13. METOPROLOL TARTRATE [Concomitant]
     Dosage: 25 MILLIGRAM
     Route: 065
  14. REVLIMID [Suspect]
     Dosage: 25 MILLIGRAM
     Route: 048
     Dates: start: 20110320
  15. ACYCLOVIR [Concomitant]
     Dosage: 400 MILLIGRAM
     Route: 065
  16. LISINOPRIL AND HYDROCHLOROTHIAZIDE [Concomitant]
     Dosage: 20/12.5
     Route: 065
  17. ZOMETA [Concomitant]
     Route: 041
  18. HEPARIN [Concomitant]
     Route: 065
  19. REVLIMID [Suspect]
     Indication: MULTIPLE MYELOMA
     Dosage: 25 MILLIGRAM
     Route: 048
     Dates: start: 20071030, end: 20110308
  20. WARFARIN SODIUM [Concomitant]
     Dosage: 7.5MG 1.5
     Route: 048
     Dates: end: 20110715
  21. CALCIUM WITH VITAMIN D [Concomitant]
     Dosage: 600 MILLIGRAM
     Route: 065

REACTIONS (5)
  - CARDIAC VALVE DISEASE [None]
  - ATRIAL FLUTTER [None]
  - CARDIAC FAILURE CONGESTIVE [None]
  - SQUAMOUS CELL CARCINOMA [None]
  - BONE MARROW FAILURE [None]
